FAERS Safety Report 6206527-4 (Version None)
Quarter: 2009Q2

REPORT INFORMATION
  Report Type: 
  Country: None (occurrence: None)
  Receive Date: 20090527
  Receipt Date: 20090527
  Transmission Date: 20091009
  Serious: Yes (Hospitalization)
  Sender: FDA-Public Use
  Company Number: None

PATIENT
  Sex: Female
  Weight: 67 kg

DRUGS (10)
  1. RITUXIMAB [Suspect]
     Indication: WEGENER'S GRANULOMATOSIS
     Dosage: 375 MG/M2 WEEKLY X 4 IV DRIP
     Route: 041
     Dates: start: 20081006, end: 20081028
  2. PREDNISONE [Concomitant]
  3. VITAMIN D [Concomitant]
  4. OS-CAL D [Concomitant]
  5. FERROUS SULFATE TAB [Concomitant]
  6. FISH OIL [Concomitant]
  7. MULTI-VITAMIN [Concomitant]
  8. OMEPRAZOLE [Concomitant]
  9. POTASSIUM CHLORIDE [Concomitant]
  10. TRAZODONE HCL [Concomitant]

REACTIONS (5)
  - DIARRHOEA [None]
  - ECZEMA [None]
  - FEBRILE NEUTROPENIA [None]
  - RASH [None]
  - SINUSITIS [None]
